FAERS Safety Report 7529225-3 (Version None)
Quarter: 2011Q2

REPORT INFORMATION
  Report Type: 
  Country: None (occurrence: None)
  Receive Date: 20110607
  Receipt Date: 20110525
  Transmission Date: 20111010
  Serious: Yes (Life-Threatening)
  Sender: FDA-Public Use
  Company Number: US-ROCHE-774665

PATIENT
  Sex: Male
  Weight: 74.4 kg

DRUGS (7)
  1. AVASTIN [Suspect]
     Route: 042
     Dates: start: 20110405, end: 20110419
  2. LEUCOVORIN CALCIUM [Suspect]
     Route: 042
     Dates: start: 20110405, end: 20110419
  3. FLUOROURACIL [Suspect]
     Route: 042
     Dates: start: 20070801, end: 20071109
  4. FLUOROURACIL [Suspect]
     Route: 042
     Dates: start: 20110405, end: 20110419
  5. OXALIPLATIN [Suspect]
     Route: 042
     Dates: start: 20070801, end: 20071109
  6. FLUOROURACIL [Suspect]
     Route: 042
     Dates: start: 20070327, end: 20070501
  7. OXALIPLATIN [Suspect]
     Route: 042
     Dates: start: 20110405, end: 20110419

REACTIONS (8)
  - RENAL FAILURE ACUTE [None]
  - BLOOD CREATININE INCREASED [None]
  - HYPERTENSION [None]
  - NAUSEA [None]
  - NEUTROPENIA [None]
  - PLATELET COUNT DECREASED [None]
  - EATING DISORDER [None]
  - PROTEINURIA [None]
